FAERS Safety Report 7164459-1 (Version None)
Quarter: 2010Q4

REPORT INFORMATION
  Report Type: 
  Country: None (occurrence: None)
  Receive Date: 20101215
  Receipt Date: 20101206
  Transmission Date: 20110411
  Serious: Yes (Hospitalization, Other)
  Sender: FDA-Public Use
  Company Number: US-ABBOTT-10P-163-0639768-00

PATIENT
  Sex: Female
  Weight: 61.29 kg

DRUGS (21)
  1. HUMIRA [Suspect]
     Indication: CROHN'S DISEASE
     Route: 058
     Dates: end: 20090901
  2. HUMIRA [Suspect]
     Indication: ARTHRITIS
     Dates: start: 20090901, end: 20100120
  3. HUMIRA [Suspect]
     Dates: start: 20100401, end: 20101202
  4. NASAL QUART AQ [Concomitant]
     Indication: SEASONAL ALLERGY
  5. PANTANSE [Concomitant]
     Indication: SEASONAL ALLERGY
     Dosage: 0.6%, 2 SPRAYS IN 1 DAY
     Route: 045
  6. SINGULAIR [Concomitant]
     Indication: SEASONAL ALLERGY
     Dosage: DAILY DOSE: 10MG IN A.M.
  7. CELEXA [Concomitant]
     Indication: PRODUCT USED FOR UNKNOWN INDICATION
     Dosage: 20MG, 2 IN 1 DAY
  8. ELMIRON [Concomitant]
     Indication: CYSTITIS INTERSTITIAL
  9. UTIRA C [Concomitant]
     Indication: CYSTITIS INTERSTITIAL
  10. KLONOPIN [Concomitant]
     Indication: PRODUCT USED FOR UNKNOWN INDICATION
     Dosage: AT BEDTIME
  11. PREMPRO [Concomitant]
     Indication: PRODUCT USED FOR UNKNOWN INDICATION
     Dosage: DAILY DOSE: 0.625MG AT BEDTIME
  12. PROTONIX [Concomitant]
     Indication: GASTROOESOPHAGEAL REFLUX DISEASE
     Dosage: DAILY DOSE: 40MG AT BEDTIME
  13. VERAMIST [Concomitant]
     Indication: SINUS DISORDER
  14. LOMOTIL [Concomitant]
     Indication: DIARRHOEA
  15. LOMOTIL [Concomitant]
     Indication: CROHN'S DISEASE
  16. LOMOTIL [Concomitant]
     Indication: IRRITABLE BOWEL SYNDROME
  17. IMODIUM [Concomitant]
     Indication: DIARRHOEA
  18. IMODIUM [Concomitant]
     Indication: CROHN'S DISEASE
  19. IMODIUM [Concomitant]
     Indication: IRRITABLE BOWEL SYNDROME
  20. MOBIC [Concomitant]
     Indication: PRODUCT USED FOR UNKNOWN INDICATION
  21. SIMCOR [Concomitant]
     Indication: BLOOD CHOLESTEROL INCREASED

REACTIONS (15)
  - ABDOMINAL PAIN [None]
  - ARTHRITIS [None]
  - ASTHENIA [None]
  - COLON NEOPLASM [None]
  - CONFUSIONAL STATE [None]
  - CORNEAL ABRASION [None]
  - CROHN'S DISEASE [None]
  - DECREASED APPETITE [None]
  - DIARRHOEA [None]
  - DRUG INEFFECTIVE [None]
  - FIBROMYALGIA [None]
  - INCORRECT DOSE ADMINISTERED [None]
  - INJECTION SITE EXTRAVASATION [None]
  - PROCEDURAL PAIN [None]
  - WEIGHT DECREASED [None]
